FAERS Safety Report 4318832-7 (Version None)
Quarter: 2004Q1

REPORT INFORMATION
  Report Type: 
  Country: None (occurrence: None)
  Receive Date: 20040315
  Receipt Date: 20040302
  Transmission Date: 20041129
  Serious: Yes (Other)
  Sender: FDA-Public Use
  Company Number: 2004010465

PATIENT
  Sex: Male

DRUGS (3)
  1. ZITHROMAX [Suspect]
     Indication: MYCOBACTERIAL INFECTION
     Dosage: (DAILY), ORAL
     Route: 048
     Dates: start: 20030101
  2. ZITHROMAX [Suspect]
     Indication: NEOPLASM MALIGNANT
     Dosage: (DAILY), ORAL
     Route: 048
     Dates: start: 20030101
  3. ZITHROMAX [Suspect]
     Indication: RESPIRATORY DISORDER
     Dosage: (DAILY), ORAL
     Route: 048
     Dates: start: 20030101

REACTIONS (7)
  - BACTERIA SPUTUM IDENTIFIED [None]
  - DISEASE PROGRESSION [None]
  - INFLAMMATION [None]
  - MEDICATION ERROR [None]
  - RHINITIS [None]
  - RHINORRHOEA [None]
  - TONGUE DISORDER [None]
